FAERS Safety Report 8211691-1 (Version None)
Quarter: 2012Q1

REPORT INFORMATION
  Report Type: 
  Country: None (occurrence: None)
  Receive Date: 20120229
  Receipt Date: 20111209
  Transmission Date: 20120608
  Serious: Yes (Hospitalization)
  Sender: FDA-Public Use
  Company Number: PHEH2011US011599

PATIENT
  Sex: Female

DRUGS (1)
  1. TEGRETOL [Suspect]
     Indication: CONVULSION
     Dates: start: 20010425, end: 20010501

REACTIONS (9)
  - STEVENS-JOHNSON SYNDROME [None]
  - CHAPPED LIPS [None]
  - SCAR [None]
  - PYREXIA [None]
  - DEFORMITY [None]
  - DISABILITY [None]
  - PAIN [None]
  - RASH [None]
  - LIP SWELLING [None]
